APPROVED DRUG PRODUCT: AMITRIPTYLINE HYDROCHLORIDE
Active Ingredient: AMITRIPTYLINE HYDROCHLORIDE
Strength: 75MG
Dosage Form/Route: TABLET;ORAL
Application: A215376 | Product #004 | TE Code: BX
Applicant: RUBICON RESEARCH LTD
Approved: May 1, 2023 | RLD: No | RS: No | Type: RX